FAERS Safety Report 23887527 (Version 2)
Quarter: 2024Q2

REPORT INFORMATION
  Report Type: Spontaneous
  Country: US (occurrence: US)
  Receive Date: 20240523
  Receipt Date: 20240603
  Transmission Date: 20240715
  Serious: Yes (Hospitalization, Other)
  Sender: FDA-Public Use
  Company Number: US-ABBVIE-5766222

PATIENT
  Sex: Female

DRUGS (7)
  1. VENCLEXTA [Suspect]
     Active Substance: VENETOCLAX
     Indication: Chronic lymphocytic leukaemia
     Dosage: FREQUENCY TEXT: ON DAY 1?FORM STRENGTH: 100 MG
     Route: 048
  2. VENCLEXTA [Suspect]
     Active Substance: VENETOCLAX
     Indication: Chronic lymphocytic leukaemia
     Dosage: FREQUENCY TEXT: ON DAY 2?FORM STRENGTH: 100 MG
     Route: 048
  3. VENCLEXTA [Suspect]
     Active Substance: VENETOCLAX
     Indication: Chronic lymphocytic leukaemia
     Dosage: FORM STRENGTH: 100 MG
     Route: 048
  4. GAZYVA [Suspect]
     Active Substance: OBINUTUZUMAB
     Indication: Nodular lymphocyte predominant Hodgkin lymphoma
     Dosage: DAY 1
     Route: 042
     Dates: start: 20220323, end: 20230323
  5. GAZYVA [Suspect]
     Active Substance: OBINUTUZUMAB
     Indication: Nodular lymphocyte predominant Hodgkin lymphoma
     Dosage: FORM STRENGTH: 1000 MG
     Route: 042
     Dates: start: 20220407
  6. GAZYVA [Suspect]
     Active Substance: OBINUTUZUMAB
     Indication: Nodular lymphocyte predominant Hodgkin lymphoma
     Dosage: FORM STRENGTH: 1000 MG
     Route: 042
     Dates: start: 20220331, end: 20220331
  7. GAZYVA [Suspect]
     Active Substance: OBINUTUZUMAB
     Indication: Nodular lymphocyte predominant Hodgkin lymphoma
     Dosage: FORM STRENGTH: 900 MILLIGRAM?DAY 2
     Route: 042
     Dates: start: 20220324, end: 20220324

REACTIONS (5)
  - Chronic lymphocytic leukaemia [Not Recovered/Not Resolved]
  - Dyspnoea [Not Recovered/Not Resolved]
  - Pulmonary oedema [Not Recovered/Not Resolved]
  - Asthenia [Unknown]
  - Cardiac disorder [Unknown]
